FAERS Safety Report 5672081-9 (Version None)
Quarter: 2008Q2

REPORT INFORMATION
  Report Type: 
  Country: None (occurrence: None)
  Receive Date: 20080219
  Receipt Date: 20071121
  Transmission Date: 20081010
  Serious: No
  Sender: FDA-Public Use
  Company Number: TPA2007A02411

PATIENT
  Sex: Male

DRUGS (2)
  1. ROZEREM [Suspect]
     Indication: INSOMNIA
     Dosage: 8 MG, QHS, PER ORAL
     Route: 048
     Dates: start: 20070101, end: 20071101
  2. UNKNOWN ANTIPSYCHOTIC MEDICATION(ANTIPSYCHOTICS) [Concomitant]

REACTIONS (1)
  - BLOOD TESTOSTERONE DECREASED [None]
